FAERS Safety Report 4664227-6 (Version None)
Quarter: 2005Q2

REPORT INFORMATION
  Report Type: 
  Country: None (occurrence: None)
  Receive Date: 20050516
  Receipt Date: 20050502
  Transmission Date: 20051028
  Serious: Yes (Hospitalization, Other)
  Sender: FDA-Public Use
  Company Number: 2002094678SE

PATIENT
  Age: 16 Year
  Sex: Female

DRUGS (5)
  1. SULFASALAZINE [Suspect]
     Indication: COLITIS ULCERATIVE
     Dosage: 2 GRAM (1 IN 1 D), ORAL
     Route: 048
     Dates: end: 20010912
  2. PREDNISONE [Suspect]
     Indication: COLITIS ULCERATIVE
     Dosage: 30 MG (1 IN 1 D), ORAL
     Route: 048
     Dates: start: 20010904, end: 20010912
  3. NIFEDIPINE [Suspect]
     Indication: ILL-DEFINED DISORDER
     Dosage: 10 MG (1 IN 1 D)
     Dates: end: 20010919
  4. AZATHIOPRINE [Suspect]
     Indication: COLITIS ULCERATIVE
     Dosage: 100 MG (50 MG, 2 IN 1 D), ORAL
     Route: 048
     Dates: end: 20010912
  5. MARVELON (DESOGESTREL) [Suspect]
     Indication: ILL-DEFINED DISORDER
     Dates: start: 20010701, end: 20010912

REACTIONS (4)
  - CEREBRAL INFARCTION [None]
  - HEADACHE [None]
  - NAUSEA [None]
  - TRANSVERSE SINUS THROMBOSIS [None]
